FAERS Safety Report 7608309-5 (Version None)
Quarter: 2011Q3

REPORT INFORMATION
  Report Type: 
  Country: None (occurrence: None)
  Receive Date: 20110712
  Receipt Date: 20100825
  Transmission Date: 20111222
  Serious: Yes (Other)
  Sender: FDA-Public Use
  Company Number: 2010080009

PATIENT
  Sex: Female

DRUGS (5)
  1. OXYCONTIN [Suspect]
  2. PERCOCET [Suspect]
  3. ULTRAM [Suspect]
  4. XANAX [Suspect]
  5. SOMA [Suspect]
     Dosage: ORAL
     Route: 048

REACTIONS (1)
  - CONVULSION [None]
